FAERS Safety Report 21977120 (Version 3)
Quarter: 2023Q2

REPORT INFORMATION
  Report Type: Spontaneous
  Country: US (occurrence: US)
  Receive Date: 20230210
  Receipt Date: 20230405
  Transmission Date: 20230722
  Serious: No
  Sender: FDA-Public Use
  Company Number: US-BRISTOL-MYERS SQUIBB COMPANY-2023-019665

PATIENT
  Age: 84 Year
  Sex: Male

DRUGS (1)
  1. LENALIDOMIDE [Suspect]
     Active Substance: LENALIDOMIDE
     Indication: Plasma cell myeloma
     Dosage: 1-21 OF A 28 DAY CYCLE
     Route: 048
     Dates: start: 20221020

REACTIONS (8)
  - Fall [Unknown]
  - Asthenia [Unknown]
  - Dizziness [Unknown]
  - Head injury [Unknown]
  - Pain [Unknown]
  - Dysuria [Unknown]
  - Herpes zoster [Recovering/Resolving]
  - Upper respiratory tract infection [Not Recovered/Not Resolved]
